FAERS Safety Report 21771136 (Version 1)
Quarter: 2022Q4

REPORT INFORMATION
  Report Type: Report from Study
  Country: US (occurrence: US)
  Receive Date: 20221223
  Receipt Date: 20221223
  Transmission Date: 20230112
  Serious: No
  Sender: FDA-Public Use
  Company Number: US-ABBVIE-4235871

PATIENT
  Age: 69 Year
  Sex: Male

DRUGS (1)
  1. HUMIRA [Suspect]
     Active Substance: ADALIMUMAB
     Indication: Colitis ulcerative
     Dosage: STRENGTH 40 MG?CITRATE FREE
     Route: 058
     Dates: start: 20220322

REACTIONS (5)
  - Arthralgia [Not Recovered/Not Resolved]
  - Mobility decreased [Unknown]
  - Joint range of motion decreased [Unknown]
  - Myalgia [Unknown]
  - Poor quality sleep [Unknown]

NARRATIVE: CASE EVENT DATE: 20221101
